FAERS Safety Report 8732026 (Version 3)
Quarter: 2012Q4

REPORT INFORMATION
  Report Type: 
  Country: SE (occurrence: SE)
  Receive Date: 20120820
  Receipt Date: 20121008
  Transmission Date: 20130627
  Serious: Yes (Death, Life-Threatening)
  Sender: FDA-Public Use
  Company Number: SE-ASTRAZENECA-2012SE57657

PATIENT
  Age: 79 Year
  Sex: Female

DRUGS (16)
  1. BRILIQUE [Suspect]
     Route: 048
  2. TROMBYL [Suspect]
     Route: 065
  3. CLOPIDOGREL [Suspect]
     Route: 048
  4. BIVALIRUDIN [Suspect]
     Route: 042
     Dates: start: 20120718, end: 20120718
  5. INNOHEP [Suspect]
     Route: 065
  6. WARAN [Suspect]
     Indication: ATRIAL FIBRILLATION
     Route: 048
  7. SIMVASTATIN ARROW [Concomitant]
  8. NEXIUM [Concomitant]
     Route: 048
  9. ENALAPRIL [Concomitant]
  10. CEFOTAXIM TEVA [Concomitant]
  11. SELOKEN [Concomitant]
     Route: 048
  12. ALVEDON [Concomitant]
  13. KAJOS [Concomitant]
  14. DIGOXIN BIOPHAUSIA [Concomitant]
  15. FURIX [Concomitant]
  16. GLYTRIN [Concomitant]

REACTIONS (7)
  - Pulmonary haemorrhage [Fatal]
  - Anuria [Unknown]
  - Cardiac failure [Unknown]
  - Acute respiratory distress syndrome [Unknown]
  - Endocarditis [Unknown]
  - Septic embolus [Unknown]
  - Respiratory failure [None]
